FAERS Safety Report 23349031 (Version 4)
Quarter: 2024Q2

REPORT INFORMATION
  Report Type: Spontaneous
  Country: US (occurrence: US)
  Receive Date: 20231229
  Receipt Date: 20240409
  Transmission Date: 20240716
  Serious: No
  Sender: FDA-Public Use
  Company Number: US-002147023-NVSC2023US275117

PATIENT
  Sex: Male

DRUGS (1)
  1. COSENTYX [Suspect]
     Active Substance: SECUKINUMAB
     Indication: Product used for unknown indication
     Dosage: 150 MG, QW
     Route: 065
     Dates: start: 20231220

REACTIONS (5)
  - Injection site erythema [Unknown]
  - Device issue [Unknown]
  - Device dispensing error [Unknown]
  - Incorrect dose administered by device [Unknown]
  - Product dose omission issue [Unknown]
